FAERS Safety Report 15561670 (Version 1)
Quarter: 2018Q4

REPORT INFORMATION
  Report Type: Spontaneous
  Country: US (occurrence: US)
  Receive Date: 20181029
  Receipt Date: 20181029
  Transmission Date: 20190205
  Serious: No
  Sender: FDA-Public Use
  Company Number: US-GLAXOSMITHKLINE-US2018189514

PATIENT

DRUGS (1)
  1. FLONASE SENSIMIST ALLERGY RELIEF [Suspect]
     Active Substance: FLUTICASONE FUROATE
     Indication: PRODUCT USED FOR UNKNOWN INDICATION
     Dosage: UNK
     Dates: start: 20181002, end: 20181005

REACTIONS (7)
  - Fluid retention [Unknown]
  - Dizziness [Unknown]
  - Diarrhoea [Unknown]
  - Nasal odour [Unknown]
  - Blood pressure increased [Recovering/Resolving]
  - Nausea [Unknown]
  - Oedema [Unknown]
